FAERS Safety Report 6945525-X (Version None)
Quarter: 2010Q3

REPORT INFORMATION
  Report Type: 
  Country: None (occurrence: None)
  Receive Date: 20100827
  Receipt Date: 20100817
  Transmission Date: 20110219
  Serious: Yes (Other)
  Sender: FDA-Public Use
  Company Number: BR-ROCHE-722338

PATIENT
  Age: 18 Year
  Sex: Male

DRUGS (4)
  1. ROACUTAN [Suspect]
     Indication: ACNE
     Route: 048
     Dates: start: 20100301
  2. TYLENOL-500 [Suspect]
     Indication: VIRAL INFECTION
     Route: 048
     Dates: start: 20100701
  3. DIPYRONE [Concomitant]
  4. BUSCOPAN [Concomitant]

REACTIONS (3)
  - ASPARTATE AMINOTRANSFERASE INCREASED [None]
  - BLOOD UREA INCREASED [None]
  - VIRAL INFECTION [None]
